FAERS Safety Report 15825353 (Version 2)
Quarter: 2019Q1

REPORT INFORMATION
  Report Type: Spontaneous
  Country: US (occurrence: US)
  Receive Date: 20190115
  Receipt Date: 20190130
  Transmission Date: 20190417
  Serious: Yes (Hospitalization, Other)
  Sender: FDA-Public Use
  Company Number: US-AMGEN-USASP2019002533

PATIENT
  Age: 69 Year
  Sex: Female
  Weight: 80.27 kg

DRUGS (27)
  1. ASPIRIN 81 [Concomitant]
     Active Substance: ASPIRIN
     Dosage: 81 MG, QD
     Route: 048
  2. BIOTIN [Concomitant]
     Active Substance: BIOTIN
     Dosage: 5000 MUG, UNK
     Route: 048
  3. ZANTAC [Concomitant]
     Active Substance: RANITIDINE HYDROCHLORIDE
     Dosage: 150 MG, QD
     Route: 048
     Dates: end: 20181206
  4. CRANBERRY. [Concomitant]
     Active Substance: CRANBERRY
     Dosage: 475 MG, QD
     Route: 048
  5. KEPPRA [Concomitant]
     Active Substance: LEVETIRACETAM
     Indication: PARTIAL SEIZURES
     Dosage: 250 MG, BID
     Route: 048
     Dates: end: 20190108
  6. METOPROLOL TARTRATE. [Concomitant]
     Active Substance: METOPROLOL TARTRATE
     Dosage: 100 MG, BID
     Route: 048
  7. VITAMIN D3 [Concomitant]
     Active Substance: CHOLECALCIFEROL
     Dosage: 400 UNIT, QD
     Route: 048
  8. VAGIFEM [Concomitant]
     Active Substance: ESTRADIOL
     Dosage: 10 MUG, 2 TIMES/WK
     Route: 067
  9. METFORMIN HYDROCHLORIDE. [Concomitant]
     Active Substance: METFORMIN HYDROCHLORIDE
     Indication: TYPE 2 DIABETES MELLITUS
     Dosage: 500 MG,(ONLY TOOK ONCE A DAY), QD
     Route: 048
  10. OMEPRAZOLE. [Concomitant]
     Active Substance: OMEPRAZOLE
     Dosage: 20 MG, QD
     Route: 048
     Dates: end: 20181206
  11. ALPRAZOLAM. [Concomitant]
     Active Substance: ALPRAZOLAM
     Indication: ANXIETY
     Dosage: 0.5 MG, TID (AS NECESSARY)
     Route: 048
  12. MECLIZINE HCL [Concomitant]
     Active Substance: MECLIZINE HYDROCHLORIDE
     Dosage: 25 MG, TID
     Route: 048
     Dates: end: 20181206
  13. POTASSIUM [Concomitant]
     Active Substance: POTASSIUM
  14. MAGNESIUM [Concomitant]
     Active Substance: MAGNESIUM
     Dosage: 1 DF, TID
  15. VITAMIN B12 [Concomitant]
     Active Substance: CYANOCOBALAMIN
     Dosage: 500 MUG, QD
     Route: 048
  16. OMEGA-3 ACIDS [Concomitant]
     Active Substance: OMEGA-3 FATTY ACIDS
     Dosage: 300 MG, QD
     Route: 048
  17. PROLIA [Suspect]
     Active Substance: DENOSUMAB
     Indication: OSTEOPOROSIS POSTMENOPAUSAL
     Dosage: UNK
     Route: 058
  18. CALCIUM [Concomitant]
     Active Substance: CALCIUM
  19. CENTRUM SILVER [Concomitant]
     Active Substance: MINERALS\VITAMINS
     Route: 048
  20. ROSUVASTATIN CALCIUM. [Concomitant]
     Active Substance: ROSUVASTATIN CALCIUM
     Indication: TYPE V HYPERLIPIDAEMIA
     Dosage: 10 MG, QD
     Route: 048
  21. PROLIA [Suspect]
     Active Substance: DENOSUMAB
     Dosage: 60 MG/ML, Q6MO
     Route: 058
     Dates: start: 20181107, end: 20190108
  22. METFORMIN [Concomitant]
     Active Substance: METFORMIN HYDROCHLORIDE
     Indication: GLUCOSE TOLERANCE IMPAIRED
     Dosage: 500 MG, BID
     Dates: start: 20151124
  23. IMODIUM [Concomitant]
     Active Substance: LOPERAMIDE HYDROCHLORIDE
     Dosage: 1 DF, UNK
     Route: 048
  24. SILVER SULFADIAZENE [Concomitant]
     Active Substance: SILVER SULFADIAZINE
     Dosage: UNK, QD (1 PERCENT 1 APPLICATION TO AFFECTED AREA)
  25. AMLODIPINE BESYLATE. [Concomitant]
     Active Substance: AMLODIPINE BESYLATE
     Indication: ESSENTIAL HYPERTENSION
     Dosage: 2.5 MG, QD
     Route: 048
  26. DULOXETINE HCL [Concomitant]
     Active Substance: DULOXETINE HYDROCHLORIDE
     Dosage: 20 MG, QD
     Route: 048
  27. TRADJENTA [Concomitant]
     Active Substance: LINAGLIPTIN
     Dosage: 5 MG, QD
     Route: 048
     Dates: end: 20181206

REACTIONS (23)
  - Dyspnoea [Not Recovered/Not Resolved]
  - Chest injury [Not Recovered/Not Resolved]
  - Tinnitus [Recovering/Resolving]
  - Hot flush [Not Recovered/Not Resolved]
  - Joint injury [Unknown]
  - Gait disturbance [Recovered/Resolved]
  - Musculoskeletal chest pain [Recovered/Resolved]
  - Seizure [Not Recovered/Not Resolved]
  - Erythema [Unknown]
  - Rales [Unknown]
  - Dizziness [Recovered/Resolved]
  - Loss of consciousness [Unknown]
  - Amnesia [Recovered/Resolved]
  - Hyperhidrosis [Unknown]
  - Asthenia [Not Recovered/Not Resolved]
  - Atrial fibrillation [Not Recovered/Not Resolved]
  - Chromaturia [Unknown]
  - Feeling hot [Recovering/Resolving]
  - Fatigue [Unknown]
  - Confusional state [Unknown]
  - Skin lesion [Unknown]
  - Urine analysis abnormal [Unknown]
  - Fall [Unknown]

NARRATIVE: CASE EVENT DATE: 2018
